FAERS Safety Report 9507971 (Version 2)
Quarter: 2013Q3

REPORT INFORMATION
  Report Type: Spontaneous
  Country: JP (occurrence: JP)
  Receive Date: 20130909
  Receipt Date: 20130927
  Transmission Date: 20140515
  Serious: Yes (Death, Other)
  Sender: FDA-Public Use
  Company Number: JP-ASTRAZENECA-2013SE67665

PATIENT
  Age: 81 Year
  Sex: Male

DRUGS (1)
  1. CASODEX [Suspect]
     Indication: PROSTATE CANCER
     Route: 048
     Dates: start: 201302, end: 20130215

REACTIONS (3)
  - Death [Fatal]
  - Pneumonia aspiration [Unknown]
  - Malignant neoplasm progression [Unknown]
